FAERS Safety Report 16121992 (Version 1)
Quarter: 2019Q1

REPORT INFORMATION
  Report Type: Spontaneous
  Country: US (occurrence: US)
  Receive Date: 20190327
  Receipt Date: 20190327
  Transmission Date: 20190418
  Serious: No
  Sender: FDA-Public Use
  Company Number: US-PFIZER INC-2019125223

PATIENT
  Age: 65 Year
  Sex: Female
  Weight: 52.15 kg

DRUGS (9)
  1. VITAMIN D3 [Concomitant]
     Active Substance: CHOLECALCIFEROL
     Dosage: UNK
  2. VITAMIN C [Concomitant]
     Active Substance: ASCORBIC ACID
     Dosage: UNK
  3. IMVEXXY [Suspect]
     Active Substance: ESTRADIOL
     Indication: ATROPHIC VULVOVAGINITIS
     Dosage: 10 UG, 2X/WEEK (BEFORE BED)
     Route: 067
     Dates: start: 2018, end: 2018
  4. VITAMIN B12 [Concomitant]
     Active Substance: CYANOCOBALAMIN
     Dosage: UNK
  5. ADVIL [IBUPROFEN] [Concomitant]
     Active Substance: IBUPROFEN
     Dosage: UNK
  6. IMVEXXY [Suspect]
     Active Substance: ESTRADIOL
     Dosage: 10 UG, 2X/WEEK (BEFORE BED)
     Route: 067
     Dates: start: 2018, end: 2018
  7. PROBIOTICS [Concomitant]
     Active Substance: PROBIOTICS NOS
     Dosage: UNK
  8. PREMARIN [Suspect]
     Active Substance: ESTROGENS, CONJUGATED
     Indication: ATROPHIC VULVOVAGINITIS
     Dosage: UNK
     Dates: start: 2018
  9. IMVEXXY [Suspect]
     Active Substance: ESTRADIOL
     Dosage: 4 UG, 2X/WEEK
     Route: 067
     Dates: start: 201812, end: 20190203

REACTIONS (6)
  - Contraindicated product prescribed [Unknown]
  - Migraine [Unknown]
  - Middle insomnia [Unknown]
  - Headache [Unknown]
  - Feeling abnormal [Unknown]
  - Pain [Unknown]
